FAERS Safety Report 9518594 (Version 2)
Quarter: 2014Q1

REPORT INFORMATION
  Report Type: Spontaneous
  Country: US (occurrence: None)
  Receive Date: 20130305
  Receipt Date: 20140306
  Transmission Date: 20141002
  Serious: Yes (Hospitalization, Other)
  Sender: FDA-Public Use
  Company Number: 163-21880-12121237

PATIENT
  Age: 59 Year
  Sex: Male
  Weight: 107.96 kg

DRUGS (10)
  1. REVLIMID [Suspect]
     Indication: PLASMA CELL MYELOMA
     Dosage: 25 MG, 21 IN 28 D, PO
     Route: 048
     Dates: start: 20121112
  2. ASPIRIN (ACETYLSALICYLIC ACID) (TABLETS) [Concomitant]
  3. ATACAND (CANDESARTAN CILEXETIL) (TABLETS) [Concomitant]
  4. ATENOLOL (ATENOLOL) (TABLETS) [Concomitant]
  5. FLUOXETINE HCL (FLUOXETINE HYDROCHLORIDE) [Concomitant]
  6. JANUMET (JANUMET) [Concomitant]
  7. NIASPAN (NICOTINIC ACID) (TABLETS) [Concomitant]
  8. TRIAMTERENE-HCTZ (DYAZIDE) [Concomitant]
  9. VIAGRA (SILDENAFIL CITRATE) (TABLETS) [Concomitant]
  10. VITAMIN D (ERGOCALCIFEROL) [Concomitant]

REACTIONS (2)
  - Pneumonia [None]
  - Rash pruritic [None]
